FAERS Safety Report 6120798-4 (Version None)
Quarter: 2009Q1

REPORT INFORMATION
  Report Type: 
  Country: None (occurrence: None)
  Receive Date: 20090312
  Receipt Date: 20090226
  Transmission Date: 20090719
  Serious: Yes (Death, Hospitalization)
  Sender: FDA-Public Use
  Company Number: 2005001526

PATIENT
  Age: 68 Year
  Sex: Male

DRUGS (6)
  1. ERLOTINIB (ERLOTINIB)(TABLET)(ERLOTINIB) [Suspect]
     Indication: NON-SMALL CELL LUNG CANCER
     Dosage: 150 MG (150 MG,QD), ORAL
     Route: 048
     Dates: start: 20050620, end: 20050710
  2. OMEPRAZOLE [Concomitant]
  3. DEXAMETHASONE TAB [Concomitant]
  4. NYSTATIN [Concomitant]
  5. METOCLOPRAMIDE [Concomitant]
  6. MORPHINE [Concomitant]

REACTIONS (4)
  - ASTHENIA [None]
  - HYPERTENSION [None]
  - RASH [None]
  - SKIN INFECTION [None]
